FAERS Safety Report 11761821 (Version 2)
Quarter: 2015Q4

REPORT INFORMATION
  Report Type: Spontaneous
  Country: CN (occurrence: CN)
  Receive Date: 20151120
  Receipt Date: 20151202
  Transmission Date: 20160304
  Serious: Yes (Hospitalization)
  Sender: FDA-Public Use
  Company Number: CN-OTSUKA-2015_014745

PATIENT
  Age: 74 Year
  Sex: Male

DRUGS (1)
  1. DACOGEN [Suspect]
     Active Substance: DECITABINE
     Indication: MYELODYSPLASTIC SYNDROME
     Dosage: 20 MG, 1 IN 1 DAY
     Route: 042
     Dates: start: 20150723, end: 20150824

REACTIONS (3)
  - Prostatitis [Recovering/Resolving]
  - Cystitis [Recovering/Resolving]
  - Urinary retention [Recovering/Resolving]

NARRATIVE: CASE EVENT DATE: 201511
